FAERS Safety Report 8078377-8 (Version None)
Quarter: 2012Q1

REPORT INFORMATION
  Report Type: 
  Country: None (occurrence: None)
  Receive Date: 20120123
  Receipt Date: 20120109
  Transmission Date: 20120608
  Serious: Yes (Hospitalization, Other)
  Sender: FDA-Public Use
  Company Number: 2011P1014669

PATIENT
  Sex: Male
  Weight: 90.7194 kg

DRUGS (12)
  1. ASPIRIN [Concomitant]
  2. ALPRAZOLAM [Concomitant]
  3. LISINOPRIL [Concomitant]
  4. CLONAZEPAM [Concomitant]
  5. SOTALOL HCL [Concomitant]
  6. COUMADIN [Suspect]
     Dates: start: 20110901, end: 20110101
  7. WARFARIN SODIUM [Suspect]
     Indication: AORTIC VALVE DISEASE
     Dosage: 10-15 MG; QD; PO, 15-20 MG; QD; PO, 12-15 MG; QD; 50, 50 MG; 75 MG; 80 MG
     Dates: start: 20110101
  8. WARFARIN SODIUM [Suspect]
     Indication: AORTIC VALVE DISEASE
     Dosage: 10-15 MG; QD; PO, 15-20 MG; QD; PO, 12-15 MG; QD; 50, 50 MG; 75 MG; 80 MG
     Dates: start: 20111204, end: 20111201
  9. WARFARIN SODIUM [Suspect]
     Indication: AORTIC VALVE DISEASE
     Dosage: 10-15 MG; QD; PO, 15-20 MG; QD; PO, 12-15 MG; QD; 50, 50 MG; 75 MG; 80 MG
     Dates: start: 20111214
  10. WARFARIN SODIUM [Suspect]
     Indication: AORTIC VALVE DISEASE
     Dosage: 10-15 MG; QD; PO, 15-20 MG; QD; PO, 12-15 MG; QD; 50, 50 MG; 75 MG; 80 MG
     Dates: start: 20111213
  11. WARFARIN SODIUM [Suspect]
     Indication: AORTIC VALVE DISEASE
     Dosage: 10-15 MG; QD; PO, 15-20 MG; QD; PO, 12-15 MG; QD; 50, 50 MG; 75 MG; 80 MG
     Dates: start: 20070101, end: 20110901
  12. WARFARIN SODIUM [Suspect]
     Indication: AORTIC VALVE DISEASE
     Dosage: 10-15 MG; QD; PO, 15-20 MG; QD; PO, 12-15 MG; QD; 50, 50 MG; 75 MG; 80 MG
     Dates: start: 20111215

REACTIONS (11)
  - DRUG LEVEL BELOW THERAPEUTIC [None]
  - ANXIETY [None]
  - PRODUCT SUBSTITUTION ISSUE [None]
  - ATRIAL TACHYCARDIA [None]
  - CEREBRAL INFARCTION [None]
  - CONFUSIONAL STATE [None]
  - DYSGEUSIA [None]
  - DRUG RESISTANCE [None]
  - DIZZINESS [None]
  - TRANSIENT ISCHAEMIC ATTACK [None]
  - ATRIAL FIBRILLATION [None]
